FAERS Safety Report 26107844 (Version 1)
Quarter: 2025Q4

REPORT INFORMATION
  Report Type: Spontaneous
  Country: GB (occurrence: GB)
  Receive Date: 20251201
  Receipt Date: 20251201
  Transmission Date: 20260118
  Serious: Yes (Other)
  Sender: MYLAN
  Company Number: None

PATIENT
  Age: 71 Year
  Sex: Male
  Weight: 62 kg

DRUGS (1)
  1. CANDESARTAN [Suspect]
     Active Substance: CANDESARTAN
     Indication: Acute coronary syndrome
     Dosage: 2 MILLIGRAM, QD (OD)
     Dates: start: 20251112, end: 20251114

REACTIONS (1)
  - Acute kidney injury [Recovering/Resolving]

NARRATIVE: CASE EVENT DATE: 20251114
